FAERS Safety Report 8244085-3 (Version None)
Quarter: 2012Q1

REPORT INFORMATION
  Report Type: 
  Country: None (occurrence: None)
  Receive Date: 20120309
  Receipt Date: 20100927
  Transmission Date: 20120608
  Serious: Yes (Other)
  Sender: FDA-Public Use
  Company Number: PHHY2010US64862

PATIENT
  Age: 53 Year
  Sex: Female

DRUGS (3)
  1. ZITHROMAX [Suspect]
  2. CLARITIN [Concomitant]
  3. EXTAVIA [Suspect]
     Indication: MULTIPLE SCLEROSIS
     Dosage: 0.25 MG, QOD, SUBCUTANEOUS
     Route: 058
     Dates: start: 20100501, end: 20100919

REACTIONS (5)
  - SINUSITIS [None]
  - RASH GENERALISED [None]
  - FATIGUE [None]
  - INJECTION SITE PAIN [None]
  - NAUSEA [None]
